FAERS Safety Report 9924049 (Version 2)
Quarter: 2014Q1

REPORT INFORMATION
  Report Type: Report from Study
  Country: US (occurrence: US)
  Receive Date: 20140225
  Receipt Date: 20140327
  Transmission Date: 20141002
  Serious: Yes (Death, Hospitalization)
  Sender: FDA-Public Use
  Company Number: US-JNJFOC-20140213383

PATIENT
  Sex: Male

DRUGS (2)
  1. ACETAMINOPHEN [Suspect]
     Route: 065
  2. ACETAMINOPHEN [Suspect]
     Indication: PRODUCT USED FOR UNKNOWN INDICATION
     Dosage: DOSE FOR 48 HOURS
     Route: 065
     Dates: start: 19981008, end: 19981012

REACTIONS (6)
  - Toxicity to various agents [Fatal]
  - Mucopolysaccharidosis [Fatal]
  - Acute hepatic failure [Fatal]
  - Multi-organ failure [Fatal]
  - Renal failure [Unknown]
  - Encephalopathy [Unknown]
